FAERS Safety Report 18303466 (Version 1)
Quarter: 2020Q3

REPORT INFORMATION
  Report Type: Other
  Country: US (occurrence: US)
  Receive Date: 20200924
  Receipt Date: 20200924
  Transmission Date: 20201103
  Serious: Yes (Death, Other)
  Sender: FDA-Public Use
  Company Number: US-ROCHE-2681520

PATIENT
  Age: 51 Year
  Sex: Male

DRUGS (8)
  1. CLADRIBINE. [Concomitant]
     Active Substance: CLADRIBINE
     Indication: PRODUCT USED FOR UNKNOWN INDICATION
     Dosage: 5 MG/M2 X  5 DAYS
     Route: 065
  2. AZITHROMYCIN ANHYDROUS. [Concomitant]
     Active Substance: AZITHROMYCIN ANHYDROUS
     Indication: PRODUCT USED FOR UNKNOWN INDICATION
     Route: 065
  3. DESMOPRESSIN [Concomitant]
     Active Substance: DESMOPRESSIN
     Indication: PRODUCT USED FOR UNKNOWN INDICATION
     Route: 065
  4. ACTILYSE [Suspect]
     Active Substance: ALTEPLASE
     Indication: PULMONARY EMBOLISM
     Dosage: INFUSED OVER 12 H FREQUENCY: 1, FREQUENCY UNIT: 809
     Route: 065
  5. TESTOSTERONE. [Concomitant]
     Active Substance: TESTOSTERONE
     Indication: PRODUCT USED FOR UNKNOWN INDICATION
     Route: 065
  6. LEVOTHYROXINE. [Concomitant]
     Active Substance: LEVOTHYROXINE
     Indication: PRODUCT USED FOR UNKNOWN INDICATION
     Route: 065
  7. HEPARIN [Concomitant]
     Active Substance: HEPARIN SODIUM
     Indication: PULMONARY EMBOLISM
     Route: 042
  8. LOW MOLECULAR WEIGHT HEPARIN [Concomitant]
     Active Substance: UNSPECIFIED INGREDIENT
     Indication: THROMBOSIS PROPHYLAXIS
     Route: 058

REACTIONS (6)
  - Haemorrhage [Unknown]
  - Haematoma [Unknown]
  - Shock [Unknown]
  - Death [Fatal]
  - Musculoskeletal pain [Unknown]
  - Hypotension [Unknown]
